FAERS Safety Report 8169933-7 (Version None)
Quarter: 2012Q1

REPORT INFORMATION
  Report Type: 
  Country: None (occurrence: None)
  Receive Date: 20120228
  Receipt Date: 20120228
  Transmission Date: 20120608
  Serious: Yes (Other)
  Sender: FDA-Public Use
  Company Number: None

PATIENT
  Sex: Male
  Weight: 83.914 kg

DRUGS (2)
  1. DEXAMETHASONE [Concomitant]
     Dosage: 2 TABLETS
     Route: 048
  2. DEXAMETHASONE [Suspect]
     Dosage: 1 TABLET DAILY
     Route: 048

REACTIONS (6)
  - ABDOMINAL DISCOMFORT [None]
  - ATRIAL FIBRILLATION [None]
  - INSOMNIA [None]
  - CONSTIPATION [None]
  - DRUG INTOLERANCE [None]
  - ANXIETY [None]
